FAERS Safety Report 6144512-1 (Version None)
Quarter: 2009Q2

REPORT INFORMATION
  Report Type: 
  Country: None (occurrence: None)
  Receive Date: 20090406
  Receipt Date: 20090402
  Transmission Date: 20091009
  Serious: Yes (Life-Threatening)
  Sender: FDA-Public Use
  Company Number: JP-ASTRAZENECA-2009AP02012

PATIENT
  Age: 82 Year
  Sex: Male
  Weight: 53 kg

DRUGS (11)
  1. TENORMIN [Suspect]
     Indication: HYPERTENSION
     Route: 048
     Dates: start: 20050125, end: 20061001
  2. TENORMIN [Suspect]
     Route: 048
     Dates: start: 20061002
  3. AMLODIPINE [Suspect]
     Indication: HYPERTENSION
     Route: 048
     Dates: start: 20070319, end: 20070819
  4. AMLODIPINE [Suspect]
     Route: 048
     Dates: start: 20070820
  5. BLOPRESS [Suspect]
     Indication: HYPERTENSION
     Route: 048
     Dates: start: 20051227
  6. ASPIRIN [Concomitant]
     Route: 048
     Dates: start: 20020723
  7. CLARITH [Concomitant]
     Route: 048
     Dates: start: 20061030
  8. LEVOTHYROXINE SODIUM [Concomitant]
     Indication: GOITRE
     Route: 048
     Dates: start: 20060127
  9. DEPAS [Concomitant]
     Route: 048
     Dates: start: 20070115
  10. OMEPRAL [Concomitant]
     Route: 048
     Dates: start: 20071210
  11. SEREVENT [Concomitant]
     Route: 055
     Dates: start: 20070219

REACTIONS (9)
  - ATRIAL FIBRILLATION [None]
  - BLOOD PRESSURE IMMEASURABLE [None]
  - BRADYCARDIA [None]
  - COAGULOPATHY [None]
  - HEPATIC FUNCTION ABNORMAL [None]
  - HYPERKALAEMIA [None]
  - RENAL FAILURE ACUTE [None]
  - SHOCK [None]
  - VOMITING [None]
